FAERS Safety Report 4557837-8 (Version None)
Quarter: 2005Q1

REPORT INFORMATION
  Report Type: 
  Country: None (occurrence: None)
  Receive Date: 20050118
  Receipt Date: 20050104
  Transmission Date: 20050727
  Serious: No
  Sender: FDA-Public Use
  Company Number: 9636

PATIENT
  Age: 47 Year
  Sex: Female

DRUGS (2)
  1. METHOTREXATE [Suspect]
     Indication: RHEUMATOID ARTHRITIS
     Route: 048
  2. FOLIC ACID [Concomitant]

REACTIONS (8)
  - BONE MARROW DEPRESSION [None]
  - COUGH [None]
  - CREPITATIONS [None]
  - DRUG TOXICITY [None]
  - LOWER RESPIRATORY TRACT INFECTION [None]
  - MALAISE [None]
  - RENAL FAILURE ACUTE [None]
  - SOMNOLENCE [None]
